FAERS Safety Report 5248665-9 (Version None)
Quarter: 2007Q1

REPORT INFORMATION
  Report Type: 
  Country: None (occurrence: None)
  Receive Date: 20070227
  Receipt Date: 20070227
  Transmission Date: 20070707
  Serious: Yes (Hospitalization)
  Sender: FDA-Public Use
  Company Number: None

PATIENT
  Sex: Female
  Weight: 47.8 kg

DRUGS (2)
  1. CARBOPLATIN [Suspect]
     Dosage: AUC=6, REPEATED EVERY 21 DAYS FOR 7 CYCLES
  2. TAXOL [Suspect]
     Dosage: 175MG/M2

REACTIONS (1)
  - NEUTROPENIA [None]
